FAERS Safety Report 15807065 (Version 3)
Quarter: 2019Q1

REPORT INFORMATION
  Report Type: Spontaneous
  Country: AT (occurrence: AT)
  Receive Date: 20190110
  Receipt Date: 20190222
  Transmission Date: 20190417
  Serious: Yes (Death, Other)
  Sender: FDA-Public Use
  Company Number: AT-SAMSUNG BIOEPIS-SB-2019-00075

PATIENT
  Sex: Female

DRUGS (12)
  1. RITUXIMAB. [Suspect]
     Active Substance: RITUXIMAB
     Indication: EPSTEIN-BARR VIRUS INFECTION
     Dosage: UNKNOWN
     Route: 065
  2. INFLIXIMAB [Suspect]
     Active Substance: INFLIXIMAB
     Indication: EPSTEIN-BARR VIRUS INFECTION
  3. DEXAMETHASONE. [Suspect]
     Active Substance: DEXAMETHASONE
     Indication: EPSTEIN-BARR VIRUS INFECTION
     Dosage: UNKNOWN
     Route: 065
  4. DEXAMETHASONE. [Suspect]
     Active Substance: DEXAMETHASONE
     Indication: HAEMOPHAGOCYTIC LYMPHOHISTIOCYTOSIS
  5. RITUXIMAB. [Suspect]
     Active Substance: RITUXIMAB
     Indication: HAEMOPHAGOCYTIC LYMPHOHISTIOCYTOSIS
  6. FOSCAVIR [Suspect]
     Active Substance: FOSCARNET SODIUM
     Indication: EPSTEIN-BARR VIRUS INFECTION
     Dosage: UNKNOWN
     Route: 065
  7. CIDOFOVIR. [Suspect]
     Active Substance: CIDOFOVIR
     Indication: HAEMOPHAGOCYTIC LYMPHOHISTIOCYTOSIS
  8. HUMAN NORMAL IMMUNOGLOBULIN [Suspect]
     Active Substance: HUMAN IMMUNOGLOBULIN G
     Indication: HAEMOPHAGOCYTIC LYMPHOHISTIOCYTOSIS
     Dosage: UNKNOWN
     Route: 042
  9. CIDOFOVIR. [Suspect]
     Active Substance: CIDOFOVIR
     Indication: EPSTEIN-BARR VIRUS INFECTION
     Dosage: UNKNOWN
     Route: 065
  10. INFLIXIMAB [Suspect]
     Active Substance: INFLIXIMAB
     Indication: HAEMOPHAGOCYTIC LYMPHOHISTIOCYTOSIS
     Dosage: UNKNOWN
     Route: 065
     Dates: start: 2008
  11. FOSCAVIR [Suspect]
     Active Substance: FOSCARNET SODIUM
     Indication: HAEMOPHAGOCYTIC LYMPHOHISTIOCYTOSIS
  12. HUMAN NORMAL IMMUNOGLOBULIN [Suspect]
     Active Substance: HUMAN IMMUNOGLOBULIN G
     Indication: EPSTEIN-BARR VIRUS INFECTION

REACTIONS (5)
  - Epstein-Barr virus infection [Unknown]
  - Multiple organ dysfunction syndrome [Fatal]
  - Haemophagocytic lymphohistiocytosis [Fatal]
  - Drug ineffective for unapproved indication [Fatal]
  - Malignant neoplasm progression [Unknown]
